FAERS Safety Report 4872530-X (Version None)
Quarter: 2005Q4

REPORT INFORMATION
  Report Type: 
  Country: None (occurrence: None)
  Receive Date: 20051230
  Receipt Date: 20051230
  Transmission Date: 20060501
  Serious: Yes (Hospitalization)
  Sender: FDA-Public Use
  Company Number: None

PATIENT
  Sex: Male
  Weight: 82.5547 kg

DRUGS (3)
  1. BEVACIZUMAB [Suspect]
     Indication: TRANSITIONAL CELL CARCINOMA
     Dosage: 15 MG PER KG Q 3 WKS IV
     Route: 042
     Dates: start: 20050421, end: 20050929
  2. PACLITAXEL [Concomitant]
  3. CARBOPLATIN [Concomitant]

REACTIONS (3)
  - ABDOMINAL PAIN [None]
  - DISEASE PROGRESSION [None]
  - INTESTINAL PERFORATION [None]
